FAERS Safety Report 24305233 (Version 1)
Quarter: 2024Q3

REPORT INFORMATION
  Report Type: Spontaneous
  Country: US (occurrence: US)
  Receive Date: 20240911
  Receipt Date: 20240911
  Transmission Date: 20241016
  Serious: No
  Sender: AUROBINDO
  Company Number: US-AUROBINDO-AUR-APL-2024-016643

PATIENT

DRUGS (1)
  1. ALPRAZOLAM [Suspect]
     Active Substance: ALPRAZOLAM
     Indication: Product used for unknown indication
     Dosage: UNK (1 MG FOR AT LEAST 15 TO 20 YEARS)
     Route: 065

REACTIONS (3)
  - Somnolence [Unknown]
  - Product formulation issue [Unknown]
  - Product substitution issue [Unknown]
